FAERS Safety Report 9513672 (Version 1)
Quarter: 2013Q1

REPORT INFORMATION
  Report Type: Spontaneous
  Country: US (occurrence: None)
  Receive Date: 20130305
  Receipt Date: 20130305
  Transmission Date: 20140127
  Serious: Yes (Other)
  Sender: FDA-Public Use
  Company Number: 163-21880-12102213

PATIENT
  Age: 75 Year
  Sex: Male
  Weight: 94.35 kg

DRUGS (11)
  1. REVLIMID [Suspect]
     Indication: MYELODYSPLASTIC SYNDROME
     Dosage: 1 IN 1 D
     Route: 048
     Dates: start: 201104
  2. ALIGN (BIFIDOBACTERIUM INFANTIS) [Concomitant]
  3. CALCIUM +D (OS-CAL) [Concomitant]
  4. FLUTICASONE (FLUTICASONE) [Concomitant]
  5. LEVOTHYROXINE (LEVOTHYROXINE) [Concomitant]
  6. VITAMINS [Concomitant]
  7. PAROXETINE (PAROXETINE) [Concomitant]
  8. POTASSIUM(POTASSIUM) [Concomitant]
  9. VITAMIN B12 (CYANOCOBALAMIN) [Concomitant]
  10. VITAMIN D3 (COLECALCIFEROL) [Concomitant]
  11. WARFARIN (WARFARIN) [Concomitant]

REACTIONS (1)
  - Diverticulitis [None]
